FAERS Safety Report 24345164 (Version 1)
Quarter: 2024Q3

REPORT INFORMATION
  Report Type: Spontaneous
  Country: IT (occurrence: IT)
  Receive Date: 20240920
  Receipt Date: 20240920
  Transmission Date: 20241016
  Serious: Yes (Death, Other)
  Sender: NOVARTIS
  Company Number: IT-GERMAN-SPO/ITA/24/0013132

PATIENT
  Age: 52 Year
  Sex: Female

DRUGS (7)
  1. IMATINIB [Suspect]
     Active Substance: IMATINIB
     Indication: Gastrointestinal stromal tumour
     Dosage: 400 MG, QD (FIRST LINE TREATMENT)
     Route: 065
     Dates: start: 201407, end: 201502
  2. IMATINIB [Suspect]
     Active Substance: IMATINIB
     Dosage: 200 MG, QD
     Route: 065
     Dates: start: 202308
  3. REGORAFENIB [Suspect]
     Active Substance: REGORAFENIB
     Indication: Gastrointestinal stromal tumour
     Dosage: 40 MG, QD (THIRD-LINE TREATMENT)
     Route: 065
  4. REGORAFENIB [Suspect]
     Active Substance: REGORAFENIB
     Dosage: 160 MG, QD (THIRD-LINE TREATMENT)
     Route: 065
     Dates: start: 201906
  5. REGORAFENIB [Suspect]
     Active Substance: REGORAFENIB
     Dosage: 40 MG (EVERY OTHER DAY AS A FINAL ATTEMPT)
     Route: 065
     Dates: end: 202305
  6. SUNITINIB [Suspect]
     Active Substance: SUNITINIB
     Indication: Gastrointestinal stromal tumour
     Dosage: 12.5 MG, QD (SECOND-LINE TREATMENT)
     Route: 065
     Dates: end: 201906
  7. SUNITINIB [Suspect]
     Active Substance: SUNITINIB
     Dosage: 25 MG, QD (SECOND-LINE TREATMENT)
     Route: 065
     Dates: start: 201502

REACTIONS (4)
  - Systemic infection [Fatal]
  - Neutropenia [Unknown]
  - Malignant neoplasm progression [Unknown]
  - Drug ineffective [Unknown]
